FAERS Safety Report 5133586-2 (Version None)
Quarter: 2006Q4

REPORT INFORMATION
  Report Type: 
  Country: None (occurrence: None)
  Receive Date: 20061024
  Receipt Date: 20061011
  Transmission Date: 20070319
  Serious: No
  Sender: FDA-Public Use
  Company Number: US-ELI_LILLY_AND_COMPANY-US200610002385

PATIENT
  Age: 65 Year
  Sex: Male

DRUGS (2)
  1. CYMBALTA [Suspect]
     Indication: DIABETIC NEUROPATHY
     Dosage: 30 MG, UNK
  2. CYMBALTA [Suspect]
     Dosage: 60 MG, UNK

REACTIONS (1)
  - LIVER FUNCTION TEST ABNORMAL [None]
